FAERS Safety Report 25676654 (Version 1)
Quarter: 2025Q3

REPORT INFORMATION
  Report Type: Report from Study
  Country: CN (occurrence: CN)
  Receive Date: 20250813
  Receipt Date: 20250813
  Transmission Date: 20251020
  Serious: Yes (Hospitalization)
  Sender: SANDOZ
  Company Number: CN-BEIGENE-BGN-2020-001944

PATIENT
  Age: 54 Year
  Sex: Female
  Weight: 43 kg

DRUGS (4)
  1. CAPECITABINE [Suspect]
     Active Substance: CAPECITABINE
     Dosage: 1500 MG, BID D1
     Route: 065
     Dates: start: 20201006
  2. CAPECITABINE [Suspect]
     Active Substance: CAPECITABINE
     Indication: Gastric cancer
     Dosage: 1500 MG, BID D1-14
     Route: 048
     Dates: start: 20200610, end: 20200929
  3. OXALIPLATIN [Suspect]
     Active Substance: OXALIPLATIN
     Dosage: 144 MG, Q3W
     Route: 042
     Dates: start: 20201006
  4. OXALIPLATIN [Suspect]
     Active Substance: OXALIPLATIN
     Indication: Gastric cancer
     Route: 042
     Dates: start: 20200610, end: 20201006

REACTIONS (1)
  - Platelet count decreased [Not Recovered/Not Resolved]

NARRATIVE: CASE EVENT DATE: 20200929
